FAERS Safety Report 24786514 (Version 2)
Quarter: 2025Q4

REPORT INFORMATION
  Report Type: Spontaneous
  Country: US (occurrence: US)
  Receive Date: 20241230
  Receipt Date: 20251115
  Transmission Date: 20260117
  Serious: No
  Sender: SANOFI AVENTIS
  Company Number: US-SA-2024SA379735

PATIENT
  Age: 3 Year
  Sex: Female
  Weight: 14.73 kg

DRUGS (19)
  1. DUPIXENT [Suspect]
     Active Substance: DUPILUMAB
     Indication: Illness
     Dosage: 200 MG, QM
     Route: 058
  2. DUPIXENT [Suspect]
     Active Substance: DUPILUMAB
     Indication: Dermatitis atopic
  3. PETROLEUM JELLY [Concomitant]
  4. PETROLEUM JELLY [Concomitant]
  5. CHILDREN^S MULTIVITAMIN [Concomitant]
  6. CHILDREN^S MULTIVITAMIN [Concomitant]
  7. POLY VI SOL WITH IRON [Concomitant]
  8. POLY VI SOL WITH IRON [Concomitant]
  9. DESONIDE [Concomitant]
     Active Substance: DESONIDE
  10. DESONIDE [Concomitant]
     Active Substance: DESONIDE
  11. FLUOCINONIDE [Concomitant]
     Active Substance: FLUOCINONIDE
  12. FLUOCINONIDE [Concomitant]
     Active Substance: FLUOCINONIDE
  13. TACROLIMUS [Concomitant]
     Active Substance: TACROLIMUS
  14. TACROLIMUS [Concomitant]
     Active Substance: TACROLIMUS
  15. MOMETASONE FUROATE [Concomitant]
     Active Substance: MOMETASONE FUROATE
  16. HYDROXYZINE HYDROCHLORIDE [Concomitant]
     Active Substance: HYDROXYZINE HYDROCHLORIDE
  17. MUPIROCIN [Concomitant]
     Active Substance: MUPIROCIN
  18. MUPIROCIN [Concomitant]
     Active Substance: MUPIROCIN
  19. ALCLOMETASONE DIPROPIONATE [Concomitant]
     Active Substance: ALCLOMETASONE DIPROPIONATE

REACTIONS (5)
  - Ear infection [Unknown]
  - Eczema [Unknown]
  - Rash [Unknown]
  - Therapeutic response shortened [Unknown]
  - Incorrect dose administered [Unknown]

NARRATIVE: CASE EVENT DATE: 20241001
